FAERS Safety Report 21465360 (Version 1)
Quarter: 2022Q4

REPORT INFORMATION
  Report Type: Report from Study
  Country: CA (occurrence: CA)
  Receive Date: 20221017
  Receipt Date: 20221017
  Transmission Date: 20230113
  Serious: Yes (Other)
  Sender: FDA-Public Use
  Company Number: CA-BIOGEN-2022BI01161956

PATIENT
  Sex: Female

DRUGS (2)
  1. TYSABRI [Suspect]
     Active Substance: NATALIZUMAB
     Indication: Multiple sclerosis
     Route: 050
     Dates: start: 20200918
  2. PLEGRIDY [Suspect]
     Active Substance: PEGINTERFERON BETA-1A
     Indication: Multiple sclerosis
     Route: 050

REACTIONS (11)
  - Crohn^s disease [Unknown]
  - Factor V Leiden mutation [Unknown]
  - Diarrhoea [Unknown]
  - Hiatus hernia [Unknown]
  - Amnesia [Unknown]
  - Hypoaesthesia [Unknown]
  - Hemiparesis [Unknown]
  - Gait disturbance [Unknown]
  - Balance disorder [Unknown]
  - Depression [Unknown]
  - Fatigue [Unknown]
